FAERS Safety Report 20225422 (Version 4)
Quarter: 2022Q3

REPORT INFORMATION
  Report Type: Report from Study
  Country: US (occurrence: US)
  Receive Date: 20211224
  Receipt Date: 20220811
  Transmission Date: 20221026
  Serious: No
  Sender: FDA-Public Use
  Company Number: US-NOVARTISTESTPH-NVSC2021US294952

PATIENT
  Sex: Male

DRUGS (1)
  1. ENTRESTO [Suspect]
     Active Substance: SACUBITRIL\VALSARTAN
     Indication: Cardiac failure chronic
     Dosage: 1 DOSAGE FORM, BID (24/26 MG)
     Route: 048

REACTIONS (7)
  - Muscular weakness [Unknown]
  - Temperature intolerance [Unknown]
  - Fatigue [Unknown]
  - Asthenia [Unknown]
  - Hypotension [Unknown]
  - Heat exhaustion [Unknown]
  - Somnolence [Unknown]
